FAERS Safety Report 6727231-X (Version None)
Quarter: 2010Q2

REPORT INFORMATION
  Report Type: 
  Country: None (occurrence: None)
  Receive Date: 20100517
  Receipt Date: 20100505
  Transmission Date: 20101027
  Serious: Yes (Hospitalization)
  Sender: FDA-Public Use
  Company Number: DE-ELI_LILLY_AND_COMPANY-DE201005001226

PATIENT
  Sex: Female

DRUGS (12)
  1. BYETTA [Suspect]
     Indication: DIABETES MELLITUS
     Dosage: UNK, UNK
     Dates: start: 20100105
  2. SORTIS [Concomitant]
     Dosage: UNK, UNKNOWN
     Route: 065
  3. PROVAS                             /00641902/ [Concomitant]
     Dosage: UNK, UNKNOWN
     Route: 065
  4. TORSEMIDE [Concomitant]
     Dosage: UNK, UNKNOWN
     Route: 065
  5. AGOPTON [Concomitant]
     Dosage: UNK, UNKNOWN
     Route: 065
  6. NEBIVOLOL HCL [Concomitant]
     Dosage: UNK, UNKNOWN
     Route: 065
  7. ALLOPURINOL [Concomitant]
     Dosage: UNK, UNKNOWN
     Route: 065
  8. ATROVENT [Concomitant]
     Dosage: UNK, UNKNOWN
     Route: 065
  9. PREDNISOLONE [Concomitant]
     Dosage: UNK, UNKNOWN
     Route: 065
  10. NOVODIGAL [Concomitant]
     Dosage: UNK, UNKNOWN
     Route: 065
  11. AMLODIPIN                          /00972401/ [Concomitant]
     Dosage: UNK, UNKNOWN
     Route: 065
  12. CLONIDINE [Concomitant]
     Dosage: UNK, UNKNOWN
     Route: 065

REACTIONS (1)
  - BREAST CANCER [None]
